FAERS Safety Report 10017343 (Version 3)
Quarter: 2014Q2

REPORT INFORMATION
  Report Type: Spontaneous
  Country: IT (occurrence: IT)
  Receive Date: 20140318
  Receipt Date: 20140527
  Transmission Date: 20141212
  Serious: Yes (Other)
  Sender: FDA-Public Use
  Company Number: IT-JNJFOC-20140305196

PATIENT
  Age: 37 Year
  Sex: Male
  Weight: 78 kg

DRUGS (3)
  1. HALDOL [Suspect]
     Indication: INTENTIONAL SELF-INJURY
     Route: 048
     Dates: start: 20140307, end: 20140307
  2. VALIUM [Suspect]
     Indication: INTENTIONAL SELF-INJURY
     Route: 048
     Dates: start: 20140307, end: 20140307
  3. EN [Suspect]
     Indication: INTENTIONAL SELF-INJURY
     Route: 048
     Dates: start: 20140307, end: 20140307

REACTIONS (4)
  - Self injurious behaviour [Unknown]
  - Psychomotor skills impaired [Unknown]
  - Drug abuse [Unknown]
  - Sluggishness [Unknown]
